FAERS Safety Report 4984538-4 (Version None)
Quarter: 2006Q2

REPORT INFORMATION
  Report Type: 
  Country: None (occurrence: None)
  Receive Date: 20060421
  Receipt Date: 20060410
  Transmission Date: 20061013
  Serious: Yes (Other)
  Sender: FDA-Public Use
  Company Number: 430034N05FRA

PATIENT
  Age: 58 Year
  Sex: Male

DRUGS (3)
  1. NOVANTRONE [Suspect]
     Indication: ACUTE LEUKAEMIA
     Dosage: 22 MG, 1 IN 1 DAYS, INTRAVENOUS
     Route: 042
     Dates: start: 20051124, end: 20051126
  2. GEMTUZUMAB OZOGAMICIN (GEMTUZUMAB OZOGAMICIN) [Suspect]
     Indication: ACUTE LEUKAEMIA
     Dosage: 15 MG, 1 IN 1 DAYS, INTRAVENOUS
     Route: 042
     Dates: start: 20051127, end: 20051127
  3. CYTARABINE [Suspect]
     Indication: ACUTE LEUKAEMIA
     Dosage: 3.6 G, 1 IN 1 DAYS, INTRAVENOUS
     Route: 042
     Dates: start: 20051124, end: 20051126

REACTIONS (2)
  - HYPOTONIA [None]
  - MONOPLEGIA [None]
